FAERS Safety Report 20637586 (Version 1)
Quarter: 2022Q1

REPORT INFORMATION
  Report Type: Spontaneous
  Country: DE (occurrence: DE)
  Receive Date: 20220325
  Receipt Date: 20220325
  Transmission Date: 20220423
  Serious: Yes (Other)
  Sender: FDA-Public Use
  Company Number: DE-ROCHE-3044424

PATIENT
  Sex: Female

DRUGS (7)
  1. BENDAMUSTINE HYDROCHLORIDE [Suspect]
     Active Substance: BENDAMUSTINE HYDROCHLORIDE
     Indication: Follicular lymphoma
     Dosage: (THIRD LINE THERAPY, IN COMBINATION WITH MABTHERA)
     Route: 042
     Dates: start: 20141001, end: 20150301
  2. BENDAMUSTINE HYDROCHLORIDE [Suspect]
     Active Substance: BENDAMUSTINE HYDROCHLORIDE
     Dosage: (FIFTH LINE OF THERAPY, IN COMBINATION WITH OBINUTUZUMAB)
     Route: 042
     Dates: start: 20210101, end: 20210601
  3. MABTHERA [Suspect]
     Active Substance: RITUXIMAB
     Indication: Follicular lymphoma
     Dosage: . (THIRD LINE THERAPY, IN COMBINATION WITH BENDAMUSTINE)
     Route: 065
     Dates: start: 20141001, end: 20150301
  4. MABTHERA [Suspect]
     Active Substance: RITUXIMAB
     Dosage: (6TH LINE OF THERAPY, IN COMBINATION WITH CHOP)
     Route: 065
     Dates: start: 20220216, end: 20220304
  5. OBINUTUZUMAB [Suspect]
     Active Substance: OBINUTUZUMAB
     Indication: Follicular lymphoma
     Dosage: (FIFTH LINE OF THERAPY, IN COMBINATION WITH BENDAMUSTINE)
     Route: 042
     Dates: start: 20210101, end: 20210601
  6. CYCLOPHOSPHAMIDE\DOXORUBICIN\PREDNISONE\VINCRISTINE [Suspect]
     Active Substance: CYCLOPHOSPHAMIDE\DOXORUBICIN\PREDNISONE\VINCRISTINE
     Indication: Follicular lymphoma
     Dosage: (6TH LINE OF THERAPY, IN COMBINATION WITH MABTHERA)
     Route: 065
     Dates: start: 20220216, end: 20220304
  7. IDELALISIB [Concomitant]
     Active Substance: IDELALISIB
     Indication: Follicular lymphoma
     Dosage: (FOURTH LINE OF THERAPY)
     Route: 065
     Dates: start: 20170201, end: 20190601

REACTIONS (3)
  - Ill-defined disorder [Not Recovered/Not Resolved]
  - Malignant pleural effusion [Not Recovered/Not Resolved]
  - Glomerular filtration rate decreased [Not Recovered/Not Resolved]
